FAERS Safety Report 19208396 (Version 3)
Quarter: 2021Q4

REPORT INFORMATION
  Report Type: Report from Study
  Country: US (occurrence: None)
  Receive Date: 20210503
  Receipt Date: 20211130
  Transmission Date: 20220303
  Serious: Yes (Hospitalization)
  Sender: FDA-Public Use
  Company Number: US-ROCHE-2816921

PATIENT
  Age: 76 Year
  Sex: Female

DRUGS (28)
  1. OBINUTUZUMAB [Suspect]
     Active Substance: OBINUTUZUMAB
     Indication: Chronic lymphocytic leukaemia
     Route: 042
     Dates: start: 20160505, end: 20160505
  2. OBINUTUZUMAB [Suspect]
     Active Substance: OBINUTUZUMAB
     Route: 042
     Dates: start: 20160922, end: 20160922
  3. ACALABRUTINIB [Suspect]
     Active Substance: ACALABRUTINIB
     Indication: Chronic lymphocytic leukaemia
     Route: 048
     Dates: start: 20160407, end: 20160504
  4. ACALABRUTINIB [Suspect]
     Active Substance: ACALABRUTINIB
     Route: 048
     Dates: start: 20160505, end: 20160520
  5. ACALABRUTINIB [Suspect]
     Active Substance: ACALABRUTINIB
     Route: 048
     Dates: start: 20160521, end: 20160521
  6. ACALABRUTINIB [Suspect]
     Active Substance: ACALABRUTINIB
     Route: 048
     Dates: start: 20160522, end: 20160601
  7. ACALABRUTINIB [Suspect]
     Active Substance: ACALABRUTINIB
     Route: 048
     Dates: start: 20160602, end: 20160626
  8. ACALABRUTINIB [Suspect]
     Active Substance: ACALABRUTINIB
     Route: 048
     Dates: start: 20160627, end: 20160627
  9. ACALABRUTINIB [Suspect]
     Active Substance: ACALABRUTINIB
     Route: 048
     Dates: start: 20160627, end: 20160727
  10. ACALABRUTINIB [Suspect]
     Active Substance: ACALABRUTINIB
     Route: 048
     Dates: start: 20160728, end: 20160824
  11. ACALABRUTINIB [Suspect]
     Active Substance: ACALABRUTINIB
     Route: 048
     Dates: start: 20160825, end: 20160921
  12. ACALABRUTINIB [Suspect]
     Active Substance: ACALABRUTINIB
     Route: 048
     Dates: start: 20160822, end: 20161117
  13. ACALABRUTINIB [Suspect]
     Active Substance: ACALABRUTINIB
     Route: 048
     Dates: start: 20201113, end: 20201123
  14. ACALABRUTINIB [Suspect]
     Active Substance: ACALABRUTINIB
     Route: 048
     Dates: start: 20201102, end: 20201102
  15. ACALABRUTINIB [Suspect]
     Active Substance: ACALABRUTINIB
     Route: 048
     Dates: start: 20201203, end: 20210225
  16. ACETAMINOPHEN [Concomitant]
     Active Substance: ACETAMINOPHEN
  17. VALACYCLOVIR [Concomitant]
     Active Substance: VALACYCLOVIR HYDROCHLORIDE
  18. CEPHALEXIN [Concomitant]
     Active Substance: CEPHALEXIN
  19. NYSTATIN [Concomitant]
     Active Substance: NYSTATIN
  20. VITAMIN C [Concomitant]
     Active Substance: ASCORBIC ACID
  21. NITRIC OXIDE [Concomitant]
     Active Substance: NITRIC OXIDE
  22. ACYCLOVIR [Concomitant]
     Active Substance: ACYCLOVIR
  23. LEVAQUIN [Concomitant]
     Active Substance: LEVOFLOXACIN
  24. FAMOTIDINE [Concomitant]
     Active Substance: FAMOTIDINE
  25. TRAMADOL [Concomitant]
     Active Substance: TRAMADOL
  26. DEXAMETHASONE [Concomitant]
     Active Substance: DEXAMETHASONE
  27. AMOXICILLIN [Concomitant]
     Active Substance: AMOXICILLIN
  28. ONDANSETRON [Concomitant]
     Active Substance: ONDANSETRON

REACTIONS (1)
  - Syncope [Recovered/Resolved]

NARRATIVE: CASE EVENT DATE: 20210331
